FAERS Safety Report 5783914-X (Version None)
Quarter: 2008Q2

REPORT INFORMATION
  Report Type: 
  Country: None (occurrence: None)
  Receive Date: 20080605
  Receipt Date: 20080326
  Transmission Date: 20081010
  Serious: No
  Sender: FDA-Public Use
  Company Number: A0717556A

PATIENT
  Age: 56 Year
  Sex: Female

DRUGS (3)
  1. ALLI [Suspect]
  2. MULTI-VITAMIN [Concomitant]
  3. VITAMIN B + C [Concomitant]

REACTIONS (7)
  - ABDOMINAL PAIN [None]
  - ASTHENIA [None]
  - DIARRHOEA [None]
  - FLATULENCE [None]
  - FREQUENT BOWEL MOVEMENTS [None]
  - LETHARGY [None]
  - MUSCLE SPASMS [None]
